FAERS Safety Report 9034496 (Version 2)
Quarter: 2013Q1

REPORT INFORMATION
  Report Type: Spontaneous
  Country: US (occurrence: None)
  Receive Date: 20130115
  Receipt Date: 20130128
  Transmission Date: 20140127
  Serious: Yes (Other)
  Sender: FDA-Public Use
  Company Number: JPI-P-028803

PATIENT
  Age: 58 Year
  Sex: Female
  Weight: 98.43 kg

DRUGS (6)
  1. XYREM (500 MILLIGRAM/MILLILITERS, SOLUTION) (SODIUM OXYBATE) [Suspect]
     Indication: CATAPLEXY
     Route: 048
     Dates: start: 20021031
  2. PREDNISONE [Concomitant]
  3. POTASSIUM CHLORIDE [Concomitant]
  4. VALSARTAN [Concomitant]
  5. VITAMIN B12 [Concomitant]
  6. LEVOTHYROXINE [Concomitant]

REACTIONS (7)
  - Spinal column stenosis [None]
  - Muscle spasms [None]
  - Nephrolithiasis [None]
  - Bronchitis [None]
  - Neuralgia [None]
  - Hypoaesthesia [None]
  - Neck pain [None]
